FAERS Safety Report 6524666-5 (Version None)
Quarter: 2010Q1

REPORT INFORMATION
  Report Type: 
  Country: None (occurrence: None)
  Receive Date: 20100104
  Receipt Date: 20091230
  Transmission Date: 20100710
  Serious: Yes (Hospitalization)
  Sender: FDA-Public Use
  Company Number: IT-SANOFI-AVENTIS-2009SA007982

PATIENT
  Age: 66 Year
  Sex: Male
  Weight: 100 kg

DRUGS (11)
  1. AFLIBERCEPT [Suspect]
     Indication: NON-SMALL CELL LUNG CANCER
     Route: 042
     Dates: start: 20091123, end: 20091123
  2. AFLIBERCEPT [Suspect]
     Route: 042
     Dates: start: 20090921, end: 20090921
  3. DOCETAXEL [Suspect]
     Indication: NON-SMALL CELL LUNG CANCER
     Route: 042
     Dates: start: 20091123, end: 20091123
  4. DOCETAXEL [Suspect]
     Route: 042
     Dates: start: 20090921, end: 20090921
  5. LANSOPRAZOLE [Concomitant]
     Dates: start: 20090827
  6. TAVOR [Concomitant]
     Dates: start: 20080121
  7. ALIFLUS DISKUS /01434201/ [Concomitant]
     Dates: start: 20090827
  8. SPIRIVA [Concomitant]
     Dates: start: 20090827
  9. MEDROL [Concomitant]
     Dates: start: 20090827
  10. LIMICAN [Concomitant]
     Dates: start: 20091029
  11. GRANULOKINE [Concomitant]
     Dates: start: 20091204, end: 20091204

REACTIONS (1)
  - CHOLECYSTITIS ACUTE [None]
